FAERS Safety Report 8935696 (Version 3)
Quarter: 2012Q4

REPORT INFORMATION
  Report Type: Report from Study
  Country: CA (occurrence: CA)
  Receive Date: 20121130
  Receipt Date: 20121227
  Transmission Date: 20130627
  Serious: Yes (Hospitalization)
  Sender: FDA-Public Use
  Company Number: CA-JNJFOC-20121111298

PATIENT
  Age: 22 Year
  Sex: Female
  Weight: 97.52 kg

DRUGS (9)
  1. REMICADE [Suspect]
     Indication: CROHN^S DISEASE
     Route: 042
  2. REMICADE [Suspect]
     Indication: CROHN^S DISEASE
     Dosage: therapy duration X2 doses
     Route: 042
     Dates: start: 20121103, end: 20121119
  3. IMURAN [Concomitant]
     Route: 048
  4. OXYCOCET [Concomitant]
     Dosage: 5mg/^325^[sic] for 6-8 days
     Route: 048
  5. ALL OTHER THERAPEUTIC PRODUCTS [Concomitant]
     Route: 065
  6. HYDROCORTISONE [Concomitant]
     Indication: PREMEDICATION
     Dosage: 5mg/^325^[sic] for 6-8 days
     Route: 065
  7. AERIUS [Concomitant]
     Indication: PREMEDICATION
     Dosage: 5mg/^325^[sic] for 6-8 days
     Route: 065
  8. BENADRYL [Concomitant]
     Indication: PREMEDICATION
     Dosage: 5mg/^325^[sic] for 6-8 days
     Route: 065
  9. TYLENOL [Concomitant]
     Indication: PREMEDICATION
     Dosage: 5mg/^325^[sic] for 6-8 days
     Route: 065

REACTIONS (7)
  - Adverse drug reaction [Unknown]
  - Chest pain [Unknown]
  - Gait disturbance [Unknown]
  - Swelling [Unknown]
  - Pyrexia [Unknown]
  - Headache [Unknown]
  - Pain in extremity [Unknown]
